FAERS Safety Report 4635972-3 (Version None)
Quarter: 2005Q2

REPORT INFORMATION
  Report Type: 
  Country: None (occurrence: None)
  Receive Date: 20050415
  Receipt Date: 20050404
  Transmission Date: 20051028
  Serious: Yes (Death, Life-Threatening, Hospitalization)
  Sender: FDA-Public Use
  Company Number: US-BRISTOL-MYERS SQUIBB COMPANY-12922274

PATIENT
  Age: 84 Year
  Sex: Male
  Weight: 150 kg

DRUGS (6)
  1. COUMADIN [Suspect]
  2. ASPIRIN [Suspect]
     Dosage: SINGLE DOSE
     Dates: start: 20050106, end: 20050106
  3. PLAVIX [Suspect]
  4. EPTIFIBATIDE [Suspect]
     Indication: STENT PLACEMENT
     Dosage: 180 MCG/KG BOLUS FOLLOWED BY AN INFUSION OF 1 MCG/KG/MIN
     Route: 042
     Dates: start: 20050106, end: 20050106
  5. EPTIFIBATIDE [Suspect]
     Indication: CORONARY ANGIOPLASTY
     Dosage: 180 MCG/KG BOLUS FOLLOWED BY AN INFUSION OF 1 MCG/KG/MIN
     Route: 042
     Dates: start: 20050106, end: 20050106
  6. HEPARIN [Suspect]
     Indication: ILL-DEFINED DISORDER
     Dosage: SINGLE BOLUS DOSE OF 4000 UNITS
     Dates: start: 20050106, end: 20050106

REACTIONS (6)
  - CARDIOGENIC SHOCK [None]
  - CHEST PAIN [None]
  - CONFUSIONAL STATE [None]
  - HAEMATURIA [None]
  - RESPIRATORY ARREST [None]
  - VENTRICULAR TACHYCARDIA [None]
